FAERS Safety Report 9661924 (Version 2)
Quarter: 2013Q4

REPORT INFORMATION
  Report Type: Spontaneous
  Country: US (occurrence: US)
  Receive Date: 20131031
  Receipt Date: 20131031
  Transmission Date: 20140711
  Serious: No
  Sender: FDA-Public Use
  Company Number: US-PURDUE-USA-2010-0049594

PATIENT
  Age: 34 Year
  Sex: Male

DRUGS (3)
  1. OXYCONTIN (NDA 22-272) [Suspect]
     Indication: SURGERY
     Dosage: 80 MG, SEE TEXT
  2. OXYCONTIN (NDA 22-272) [Suspect]
     Indication: INTERVERTEBRAL DISC OPERATION
  3. OXYCONTIN (NDA 22-272) [Suspect]
     Indication: SPINAL FUSION SURGERY

REACTIONS (3)
  - Medication residue present [Unknown]
  - Headache [Unknown]
  - Therapeutic response delayed [Unknown]
